FAERS Safety Report 4387928-6 (Version None)
Quarter: 2004Q2

REPORT INFORMATION
  Report Type: 
  Country: None (occurrence: None)
  Receive Date: 20040607
  Receipt Date: 20031218
  Transmission Date: 20050107
  Serious: Yes (Other)
  Sender: FDA-Public Use
  Company Number: 354547

PATIENT
  Age: 29 Year
  Sex: Female
  Weight: 69.9 kg

DRUGS (2)
  1. ACCUTANE (ISOTRETIOIN0 [Suspect]
     Indication: ACNE CYSTIC
     Dosage: ORAL
     Route: 048
     Dates: start: 19950715, end: 19960115
  2. NA [Concomitant]
     Dosage: NA

REACTIONS (5)
  - ARTHRALGIA [None]
  - ARTHRITIS [None]
  - DEPRESSION [None]
  - IRRITABLE BOWEL SYNDROME [None]
  - WEIGHT INCREASED [None]
